FAERS Safety Report 21728700 (Version 1)
Quarter: 2022Q4

REPORT INFORMATION
  Report Type: Report from Study
  Country: US (occurrence: US)
  Receive Date: 20221214
  Receipt Date: 20221214
  Transmission Date: 20230113
  Serious: No
  Sender: FDA-Public Use
  Company Number: US-ABBVIE-4229176

PATIENT
  Sex: Female

DRUGS (1)
  1. HUMIRA [Suspect]
     Active Substance: ADALIMUMAB
     Indication: Colitis ulcerative
     Route: 058

REACTIONS (6)
  - Secretion discharge [Recovered/Resolved]
  - Anxiety [Unknown]
  - Stress [Unknown]
  - Drug ineffective [Unknown]
  - Haemorrhage [Recovered/Resolved]
  - Drug specific antibody present [Unknown]
